FAERS Safety Report 7902283-X (Version None)
Quarter: 2011Q4

REPORT INFORMATION
  Report Type: 
  Country: None (occurrence: None)
  Receive Date: 20111108
  Receipt Date: 20111101
  Transmission Date: 20120403
  Serious: Yes (Hospitalization, Disabling, Other)
  Sender: FDA-Public Use
  Company Number: US-CEPHALON-2011005548

PATIENT
  Sex: Female
  Weight: 77 kg

DRUGS (7)
  1. THYROID TAB [Concomitant]
  2. PROVIGIL [Suspect]
     Indication: SLEEP APNOEA SYNDROME
     Route: 048
     Dates: start: 20101101, end: 20111001
  3. RELAFEN [Concomitant]
  4. ABILIFY [Suspect]
     Dates: end: 20111001
  5. NEURONTIN [Concomitant]
  6. CRESTOR [Concomitant]
  7. CYMBALTA [Suspect]
     Dates: end: 20111001

REACTIONS (2)
  - APHTHOUS STOMATITIS [None]
  - CONVERSION DISORDER [None]
